FAERS Safety Report 7948325 (Version 5)
Quarter: 2012Q4

REPORT INFORMATION
  Report Type: 
  Country: DE (occurrence: US)
  Receive Date: 20110517
  Receipt Date: 20121127
  Transmission Date: 20130627
  Serious: Yes (Hospitalization)
  Sender: FDA-Public Use
  Company Number: DE-BAYER-2010-006310

PATIENT
  Age: 28 Year
  Sex: Female
  Weight: 107.48 kg

DRUGS (5)
  1. YASMIN [Suspect]
     Indication: ACNE
     Dosage: UNK UNK, QD
     Route: 048
     Dates: start: 200801, end: 200809
  2. YASMIN [Suspect]
     Indication: ORAL CONTRACEPTION
  3. YAZ [Suspect]
  4. IBUPROFEN [Concomitant]
  5. ANALGESICS [Concomitant]

REACTIONS (2)
  - Pulmonary embolism [None]
  - Pain [None]
